FAERS Safety Report 25192079 (Version 1)
Quarter: 2025Q2

REPORT INFORMATION
  Report Type: Spontaneous
  Country: US (occurrence: None)
  Receive Date: 20250412
  Receipt Date: 20250412
  Transmission Date: 20250716
  Serious: Yes (Hospitalization)
  Sender: FDA-CTU
  Company Number: None

PATIENT
  Age: 62 Year
  Sex: Male
  Weight: 99.3 kg

DRUGS (4)
  1. FLUOROURACIL [Suspect]
     Active Substance: FLUOROURACIL
     Dates: end: 20241220
  2. XELODA [Suspect]
     Active Substance: CAPECITABINE
     Dates: end: 20240718
  3. LEUCOVORIN CALCIUM [Suspect]
     Active Substance: LEUCOVORIN CALCIUM
     Dates: end: 20241218
  4. ELOXATIN [Suspect]
     Active Substance: OXALIPLATIN
     Dates: end: 20241218

REACTIONS (4)
  - Escherichia test positive [None]
  - Vomiting [None]
  - Pelvic infection [None]
  - Post procedural infection [None]

NARRATIVE: CASE EVENT DATE: 20250328
